FAERS Safety Report 6401504-2 (Version None)
Quarter: 2009Q4

REPORT INFORMATION
  Report Type: 
  Country: None (occurrence: None)
  Receive Date: 20091015
  Receipt Date: 20091012
  Transmission Date: 20100525
  Serious: Yes (Hospitalization)
  Sender: FDA-Public Use
  Company Number: US-BRISTOL-MYERS SQUIBB COMPANY-14815633

PATIENT
  Age: 82 Year
  Sex: Male
  Weight: 69 kg

DRUGS (3)
  1. ERBITUX [Suspect]
     Indication: OESOPHAGEAL CARCINOMA
     Dates: start: 20090901, end: 20090929
  2. TAXOL [Suspect]
     Indication: OESOPHAGEAL CARCINOMA
     Dates: start: 20090901, end: 20090929
  3. CISPLATIN [Suspect]
     Indication: OESOPHAGEAL CARCINOMA
     Dates: start: 20090901, end: 20090929

REACTIONS (4)
  - DECREASED APPETITE [None]
  - DEHYDRATION [None]
  - DIARRHOEA [None]
  - NEUTROPENIA [None]
